FAERS Safety Report 8117727-0 (Version None)
Quarter: 2012Q1

REPORT INFORMATION
  Report Type: 
  Country: None (occurrence: None)
  Receive Date: 20120203
  Receipt Date: 20120203
  Transmission Date: 20120608
  Serious: Yes (Other)
  Sender: FDA-Public Use
  Company Number: None

PATIENT
  Age: 68 Year
  Sex: Male
  Weight: 83.1 kg

DRUGS (1)
  1. REGADENOSON [Suspect]
     Indication: ANGIOGRAM
     Dates: start: 20111115, end: 20111115

REACTIONS (4)
  - VOMITING [None]
  - CARDIAC ARREST [None]
  - FEELING ABNORMAL [None]
  - NAUSEA [None]
